FAERS Safety Report 18375330 (Version 1)
Quarter: 2020Q4

REPORT INFORMATION
  Report Type: Spontaneous
  Country: US (occurrence: US)
  Receive Date: 20201013
  Receipt Date: 20201013
  Transmission Date: 20210114
  Serious: Yes (Other)
  Sender: FDA-Public Use
  Company Number: US-CIPLA LTD.-2020US07176

PATIENT

DRUGS (1)
  1. ISOPROTERENOL. [Suspect]
     Active Substance: ISOPROTERENOL
     Indication: PRODUCT USED FOR UNKNOWN INDICATION
     Dosage: 10 MCG, UNK (INTRAVENOUS BOLUS)
     Route: 042

REACTIONS (2)
  - Ventricular extrasystoles [Recovered/Resolved]
  - Ventricular fibrillation [Recovered/Resolved]
